FAERS Safety Report 7270464-7 (Version None)
Quarter: 2011Q1

REPORT INFORMATION
  Report Type: 
  Country: None (occurrence: None)
  Receive Date: 20110202
  Receipt Date: 20110125
  Transmission Date: 20110831
  Serious: Yes (Other)
  Sender: FDA-Public Use
  Company Number: US-US-EMD SERONO, INC.-7038692

PATIENT
  Sex: Female

DRUGS (2)
  1. REBIF [Suspect]
     Indication: MULTIPLE SCLEROSIS
     Route: 058
     Dates: start: 20050104
  2. LEXAPRO [Concomitant]
     Indication: DEPRESSION

REACTIONS (4)
  - HYPOTENSION [None]
  - PLATELET COUNT DECREASED [None]
  - SPLENOMEGALY [None]
  - BLOOD IRON DECREASED [None]
